FAERS Safety Report 7689769-0 (Version None)
Quarter: 2011Q3

REPORT INFORMATION
  Report Type: 
  Country: None (occurrence: None)
  Receive Date: 20110817
  Receipt Date: 20110809
  Transmission Date: 20111222
  Serious: Yes (Other)
  Sender: FDA-Public Use
  Company Number: CA-US-EMD SERONO, INC.-7076437

PATIENT
  Sex: Female

DRUGS (11)
  1. CITALOPRAM HYDROBROMIDE [Concomitant]
  2. LOVAZA [Concomitant]
  3. JANUVIA [Concomitant]
  4. REBIF [Suspect]
     Indication: MULTIPLE SCLEROSIS
     Route: 058
     Dates: start: 19990810, end: 20110504
  5. LAMOTRIGINE [Concomitant]
  6. METFORMIN [Concomitant]
  7. EFFEXOR [Concomitant]
  8. MICARDIS HCT [Concomitant]
  9. VITAMIN D [Concomitant]
  10. VITAMIN B COMPLEX CAP [Concomitant]
  11. CRESTOR [Concomitant]

REACTIONS (1)
  - SPINAL COLUMN STENOSIS [None]
